FAERS Safety Report 13395669 (Version 1)
Quarter: 2017Q1

REPORT INFORMATION
  Report Type: Spontaneous
  Country: US (occurrence: US)
  Receive Date: 20170331
  Receipt Date: 20170331
  Transmission Date: 20170429
  Serious: Yes (Other)
  Sender: FDA-Public Use
  Company Number: None

PATIENT
  Age: 77 Year
  Sex: Female

DRUGS (2)
  1. TRIAMCINOLONE/MOXIFLOXACIN [Suspect]
     Active Substance: MOXIFLOXACIN\TRIAMCINOLONE
     Indication: CATARACT OPERATION
     Dosage: ?          OTHER FREQUENCY:ONCE;?
     Route: 047
     Dates: start: 20170201, end: 20170201
  2. TRIAMCINOLONE/MOXIFLOXACIN [Suspect]
     Active Substance: MOXIFLOXACIN\TRIAMCINOLONE
     Indication: INFECTION PROPHYLAXIS
     Dosage: ?          OTHER FREQUENCY:ONCE;?
     Route: 047
     Dates: start: 20170201, end: 20170201

REACTIONS (2)
  - Cataract operation complication [None]
  - Endophthalmitis [None]

NARRATIVE: CASE EVENT DATE: 20170201
